FAERS Safety Report 6911094-3 (Version None)
Quarter: 2010Q3

REPORT INFORMATION
  Report Type: 
  Country: None (occurrence: None)
  Receive Date: 20100806
  Receipt Date: 20100727
  Transmission Date: 20110219
  Serious: Yes (Other)
  Sender: FDA-Public Use
  Company Number: GB-AMGEN-UK390481

PATIENT
  Sex: Male
  Weight: 90 kg

DRUGS (19)
  1. ARANESP [Suspect]
     Indication: RENAL FAILURE CHRONIC
     Route: 065
  2. EPREX [Suspect]
     Route: 065
  3. ALFACALCIDOL [Concomitant]
  4. AMLODIPINE [Concomitant]
  5. ASPIRIN [Concomitant]
  6. ATENOLOL [Concomitant]
  7. ATORVASTATIN [Concomitant]
  8. BENDROFLUAZIDE [Concomitant]
  9. DOXAZOSIN [Concomitant]
  10. FERROUS SULFATE [Concomitant]
  11. FOLIC ACID [Concomitant]
  12. GLICLAZIDE [Concomitant]
  13. IRON [Concomitant]
  14. KETOVITE [Concomitant]
  15. LANSOPRAZOLE [Concomitant]
  16. NEORECORMON [Concomitant]
  17. ACETAMINOPHEN [Concomitant]
  18. QUINIDINE SULFATE [Concomitant]
  19. RANITIDINE [Concomitant]

REACTIONS (6)
  - ANTI-ERYTHROPOIETIN ANTIBODY POSITIVE [None]
  - APLASIA PURE RED CELL [None]
  - BLOOD GLUCOSE ABNORMAL [None]
  - FIBULA FRACTURE [None]
  - RENAL TRANSPLANT [None]
  - THERAPEUTIC RESPONSE DECREASED [None]
